FAERS Safety Report 24809461 (Version 1)
Quarter: 2025Q1

REPORT INFORMATION
  Report Type: Spontaneous
  Country: US (occurrence: None)
  Receive Date: 20250103
  Receipt Date: 20250103
  Transmission Date: 20250408
  Serious: Yes (Hospitalization)
  Sender: FDA-CTU
  Company Number: None

PATIENT
  Sex: Female

DRUGS (2)
  1. DROXIDOPA [Suspect]
     Active Substance: DROXIDOPA
     Indication: Orthostatic hypotension
     Dosage: FREQUENCY : 3 TIMES A DAY;?
     Route: 048
     Dates: start: 202303
  2. DROXIDOPA [Suspect]
     Active Substance: DROXIDOPA
     Indication: Syncope

REACTIONS (3)
  - Therapy cessation [None]
  - Abdominal discomfort [None]
  - Gastric bypass [None]
